APPROVED DRUG PRODUCT: FALMINA
Active Ingredient: ETHINYL ESTRADIOL; LEVONORGESTREL
Strength: 0.02MG;0.1MG
Dosage Form/Route: TABLET;ORAL-28
Application: A090721 | Product #001 | TE Code: AB1
Applicant: NOVAST LABORATORIES LTD
Approved: Mar 28, 2012 | RLD: No | RS: No | Type: RX